FAERS Safety Report 7945315-5 (Version None)
Quarter: 2011Q4

REPORT INFORMATION
  Report Type: 
  Country: None (occurrence: None)
  Receive Date: 20111129
  Receipt Date: 20110126
  Transmission Date: 20120403
  Serious: No
  Sender: FDA-Public Use
  Company Number: US-GLAXOSMITHKLINE-A0910005A

PATIENT
  Age: 54 Year
  Sex: Male

DRUGS (1)
  1. WELLBUTRIN SR [Suspect]
     Dosage: 150MG UNKNOWN
     Route: 048
     Dates: start: 20100309, end: 20101025

REACTIONS (1)
  - FEELING JITTERY [None]
